FAERS Safety Report 5312152-X (Version None)
Quarter: 2007Q2

REPORT INFORMATION
  Report Type: 
  Country: None (occurrence: None)
  Receive Date: 20070430
  Receipt Date: 20070427
  Transmission Date: 20071010
  Serious: Yes (Death)
  Sender: FDA-Public Use
  Company Number: HQWYE897430APR07

PATIENT
  Age: 62 Year
  Sex: Female

DRUGS (1)
  1. TYGACIL [Suspect]
     Dosage: 400 MG DOSE, FOLLOWED BY 200 MG PER DAY
     Route: 042
     Dates: start: 20070404, end: 20070408

REACTIONS (2)
  - DEATH [None]
  - OVERDOSE [None]
